FAERS Safety Report 12993513 (Version 2)
Quarter: 2017Q1

REPORT INFORMATION
  Report Type: Spontaneous
  Country: US (occurrence: US)
  Receive Date: 20161202
  Receipt Date: 20170227
  Transmission Date: 20170428
  Serious: No
  Sender: FDA-Public Use
  Company Number: US-LUNDBECK-DKLU2021301

PATIENT
  Age: 60 Year
  Sex: Female
  Weight: 69 kg

DRUGS (9)
  1. NORTHERA [Suspect]
     Active Substance: DROXIDOPA
     Route: 048
  2. NORTHERA [Suspect]
     Active Substance: DROXIDOPA
     Route: 048
  3. FIORICET [Concomitant]
     Active Substance: ACETAMINOPHEN\BUTALBITAL\CAFFEINE
     Indication: HEADACHE
     Dosage: 4-6
     Route: 065
  4. NORTHERA [Suspect]
     Active Substance: DROXIDOPA
     Indication: AUTONOMIC NEUROPATHY
     Dosage: SCHEDULE C AND TITRATING
     Route: 065
     Dates: start: 20161014
  5. NORTHERA [Suspect]
     Active Substance: DROXIDOPA
     Route: 048
  6. NORTHERA [Suspect]
     Active Substance: DROXIDOPA
     Route: 048
  7. NORTHERA [Suspect]
     Active Substance: DROXIDOPA
     Route: 048
  8. NORTHERA [Suspect]
     Active Substance: DROXIDOPA
     Route: 065
     Dates: start: 20161017
  9. NORTHERA [Suspect]
     Active Substance: DROXIDOPA
     Route: 048

REACTIONS (5)
  - Hypotension [Unknown]
  - Migraine [Unknown]
  - Drug effect delayed [Unknown]
  - Blood pressure increased [Unknown]
  - Headache [Unknown]

NARRATIVE: CASE EVENT DATE: 20161015
